FAERS Safety Report 8011225-0 (Version None)
Quarter: 2011Q4

REPORT INFORMATION
  Report Type: 
  Country: None (occurrence: None)
  Receive Date: 20111228
  Receipt Date: 20111222
  Transmission Date: 20120403
  Serious: Yes (Death)
  Sender: FDA-Public Use
  Company Number: US-CELGENEUS-163-21880-11123144

PATIENT
  Sex: Male
  Weight: 77.18 kg

DRUGS (7)
  1. COUMADIN [Concomitant]
     Dosage: 2.5 MILLIGRAM
     Route: 065
  2. SULFAMETHOXAZOLE AND TRIMETHOPRIM [Concomitant]
     Dosage: 800MG/160MG
     Route: 065
  3. REVLIMID [Suspect]
     Dosage: 2.5 MILLIGRAM
     Route: 048
     Dates: start: 20111128
  4. GLIPIZIDE [Concomitant]
     Dosage: 5 MILLIGRAM
     Route: 065
  5. PREDNISONE TAB [Concomitant]
     Dosage: 20 MILLIGRAM
     Route: 065
  6. FLUCONAZOLE [Concomitant]
     Dosage: 100 MILLIGRAM
     Route: 065
  7. DILTIAZEM HCL [Concomitant]
     Dosage: 120 MILLIGRAM
     Route: 065

REACTIONS (1)
  - DEATH [None]
